FAERS Safety Report 16213871 (Version 1)
Quarter: 2019Q2

REPORT INFORMATION
  Report Type: Spontaneous
  Country: NL (occurrence: FR)
  Receive Date: 20190418
  Receipt Date: 20190418
  Transmission Date: 20190711
  Serious: Yes (Hospitalization)
  Sender: FDA-Public Use
  Company Number: FR-FRESENIUS KABI-FK201904252

PATIENT
  Age: 28 Day
  Sex: Female
  Weight: 2.8 kg

DRUGS (1)
  1. LINEZOLID KABI [Suspect]
     Active Substance: LINEZOLID
     Indication: STAPHYLOCOCCAL INFECTION
     Dosage: 600MG/TOTAL
     Route: 042
     Dates: start: 20181214

REACTIONS (3)
  - Product prescribing error [Recovered/Resolved]
  - Medication error [Recovered/Resolved]
  - Accidental overdose [Recovered/Resolved]

NARRATIVE: CASE EVENT DATE: 20181214
